FAERS Safety Report 20257666 (Version 1)
Quarter: 2021Q4

REPORT INFORMATION
  Report Type: Spontaneous
  Country: DE (occurrence: DE)
  Receive Date: 20211230
  Receipt Date: 20211230
  Transmission Date: 20220303
  Serious: Yes (Other)
  Sender: FDA-Public Use
  Company Number: DE-PIRAMAL ENTERPRISES LIMITED-2021-PEL-000880

PATIENT
  Age: 22 Month
  Sex: Male
  Weight: 8 kg

DRUGS (9)
  1. FENTANYL [Suspect]
     Active Substance: FENTANYL
     Indication: Anaesthesia
     Dosage: 35 MICROGRAM
     Route: 065
     Dates: start: 202007
  2. FENTANYL [Suspect]
     Active Substance: FENTANYL
     Indication: Analgesic therapy
     Dosage: 15 MICROGRAM
     Route: 065
  3. FENTANYL [Suspect]
     Active Substance: FENTANYL
     Dosage: 15 MICROGRAM
     Route: 065
     Dates: start: 202007
  4. SEVOFLURANE [Suspect]
     Active Substance: SEVOFLURANE
     Indication: General anaesthesia
     Dosage: 6 VOL%.
     Dates: start: 202007
  5. ROCURONIUM [Suspect]
     Active Substance: ROCURONIUM BROMIDE
     Indication: Hypotonia
     Dosage: 5 MILLIGRAM
     Route: 065
     Dates: start: 202007
  6. CLONIDINE [Concomitant]
     Active Substance: CLONIDINE
     Indication: Analgesic therapy
     Dosage: 10 MICROGRAM
     Route: 065
     Dates: start: 202007
  7. MIDAZOLAM [Concomitant]
     Active Substance: MIDAZOLAM
     Indication: Premedication
     Dosage: 2.5 MILLIGRAM
     Route: 065
     Dates: start: 202007
  8. XYLOMETAZOLINE [Concomitant]
     Active Substance: XYLOMETAZOLINE
     Indication: Nasal decongestion therapy
     Dosage: 0.25 MILLIGRAM/ML
     Route: 065
     Dates: start: 202007
  9. DIPYRONE [Concomitant]
     Active Substance: DIPYRONE
     Indication: Postoperative analgesia
     Dosage: 120 MILLIGRAM
     Route: 065
     Dates: start: 202007

REACTIONS (1)
  - Procedural haemorrhage [Unknown]

NARRATIVE: CASE EVENT DATE: 20200701
